FAERS Safety Report 12804363 (Version 8)
Quarter: 2020Q1

REPORT INFORMATION
  Report Type: Report from Study
  Country: US (occurrence: US)
  Receive Date: 20161003
  Receipt Date: 20200117
  Transmission Date: 20200409
  Serious: Yes (Death, Hospitalization, Other)
  Sender: FDA-Public Use
  Company Number: US-ACTELION-A-US2016-142994

PATIENT
  Age: 43 Year
  Sex: Male

DRUGS (1)
  1. OPSUMIT [Suspect]
     Active Substance: MACITENTAN
     Indication: PULMONARY ARTERIAL HYPERTENSION
     Dosage: UNK
     Route: 048
     Dates: start: 20150909, end: 20191209

REACTIONS (17)
  - Upper gastrointestinal haemorrhage [Recovered/Resolved]
  - Flank pain [Recovered/Resolved]
  - Hepatorenal syndrome [Recovered/Resolved with Sequelae]
  - Oesophageal varices haemorrhage [Recovered/Resolved]
  - Chills [Recovered/Resolved]
  - Anuria [Recovered/Resolved with Sequelae]
  - Acute respiratory failure [Fatal]
  - Pyrexia [Recovered/Resolved]
  - Fatigue [Recovered/Resolved]
  - Blood bilirubin increased [Unknown]
  - Pyelonephritis [Recovered/Resolved]
  - Abdominal pain [Recovered/Resolved]
  - Pneumonia [Recovered/Resolved]
  - Respiratory distress [Fatal]
  - Faeces discoloured [Recovered/Resolved]
  - Dyspnoea [Recovered/Resolved]
  - Anaemia [Unknown]

NARRATIVE: CASE EVENT DATE: 20160405
